FAERS Safety Report 10611372 (Version 5)
Quarter: 2017Q4

REPORT INFORMATION
  Report Type: Spontaneous
  Country: US (occurrence: US)
  Receive Date: 20141126
  Receipt Date: 20171016
  Transmission Date: 20180320
  Serious: No
  Sender: FDA-Public Use
  Company Number: US-PFIZER INC-2014323224

PATIENT
  Age: 82 Year
  Sex: Female
  Weight: 45.36 kg

DRUGS (12)
  1. HYDROCODONE BITARTRATE. [Suspect]
     Active Substance: HYDROCODONE BITARTRATE
     Dosage: UNK
  2. ERYTHROCIN [Suspect]
     Active Substance: ERYTHROMYCIN LACTOBIONATE
     Indication: ARTHRITIS
     Dosage: UNK
     Dates: start: 2005
  3. CODEINE [Suspect]
     Active Substance: CODEINE
     Indication: KNEE ARTHROPLASTY
     Dosage: UNK
     Dates: start: 2004
  4. MORPHINE SULFATE. [Suspect]
     Active Substance: MORPHINE SULFATE
     Indication: POSTOPERATIVE CARE
     Dosage: UNK
     Dates: start: 2005
  5. ASPIRIN. [Suspect]
     Active Substance: ASPIRIN
     Indication: ARTHRITIS
     Dosage: UNK
     Dates: start: 2005
  6. FLUCONAZOLE. [Suspect]
     Active Substance: FLUCONAZOLE
     Dosage: UNK
  7. IODINE. [Suspect]
     Active Substance: IODINE
     Dosage: UNK
     Dates: start: 1984
  8. INDOCIN [Suspect]
     Active Substance: INDOMETHACIN
     Indication: ARTHRITIS
     Dosage: UNK
  9. PLAQUENIL [Suspect]
     Active Substance: HYDROXYCHLOROQUINE SULFATE
     Indication: ARTHRITIS
     Dosage: UNK
  10. IODINE. [Suspect]
     Active Substance: IODINE
     Dosage: UNK
  11. GABAPENTIN. [Suspect]
     Active Substance: GABAPENTIN
  12. CODEINE [Suspect]
     Active Substance: CODEINE
     Dosage: UNK
     Dates: start: 2005

REACTIONS (1)
  - Drug hypersensitivity [Unknown]
